FAERS Safety Report 6150501-3 (Version None)
Quarter: 2009Q2

REPORT INFORMATION
  Report Type: 
  Country: None (occurrence: None)
  Receive Date: 20090409
  Receipt Date: 20090325
  Transmission Date: 20091009
  Serious: Yes (Other)
  Sender: FDA-Public Use
  Company Number: US-PFIZER INC-2009190425

PATIENT
  Sex: Female
  Weight: 89.342 kg

DRUGS (11)
  1. LYRICA [Interacting]
     Indication: PAIN
     Dosage: 75 MG, 2X/DAY
  2. LYRICA [Interacting]
     Indication: FIBROMYALGIA
  3. CHANTIX [Suspect]
     Indication: SMOKING CESSATION THERAPY
     Dates: start: 20080101, end: 20080101
  4. ALL OTHER THERAPEUTIC PRODUCTS [Interacting]
     Dosage: UNK
  5. CLONAZEPAM [Concomitant]
     Dosage: UNK
  6. LEVOTHYROXINE [Concomitant]
     Dosage: UNK
  7. FUROSEMIDE [Concomitant]
     Dosage: UNK
  8. TRIAMTERENE [Concomitant]
     Dosage: UNK
  9. CYMBALTA [Concomitant]
     Dosage: UNK
  10. MULTI-VITAMINS [Concomitant]
     Dosage: UNK
  11. ACETYLSALICYLIC ACID [Concomitant]
     Dosage: 1 MG, 1X/DAY

REACTIONS (6)
  - ARTHROPATHY [None]
  - BONE DISORDER [None]
  - DEHYDRATION [None]
  - MUSCLE RUPTURE [None]
  - PAIN [None]
  - SPINAL DISORDER [None]
